FAERS Safety Report 4401333-5 (Version None)
Quarter: 2004Q3

REPORT INFORMATION
  Report Type: 
  Country: None (occurrence: None)
  Receive Date: 20040907
  Receipt Date: 20040315
  Transmission Date: 20050211
  Serious: No
  Sender: FDA-Public Use
  Company Number: US-BRISTOL-MYERS SQUIBB COMPANY-12532636

PATIENT
  Age: 66 Year
  Sex: Female
  Weight: 70 kg

DRUGS (6)
  1. COUMADIN [Suspect]
     Indication: AORTIC VALVE REPLACEMENT
     Dosage: 2.5MG QD X 6DAYS; 12.5MG X 1 DAY. ^ABOUT 1 YEAR AGO^, CHANGED FROM WARFARIN TO COUMADIN.
     Route: 048
     Dates: start: 20021101
  2. ANTIBIOTICS [Suspect]
     Indication: BRONCHITIS
  3. LIPITOR [Suspect]
  4. ACCUPRIL [Concomitant]
  5. COREG [Concomitant]
  6. CRESTOR [Concomitant]

REACTIONS (4)
  - BRONCHITIS [None]
  - INTERNATIONAL NORMALISED RATIO ABNORMAL [None]
  - PRURITUS [None]
  - RASH MACULAR [None]
